FAERS Safety Report 5813811-2 (Version None)
Quarter: 2008Q3

REPORT INFORMATION
  Report Type: 
  Country: None (occurrence: None)
  Receive Date: 20080714
  Receipt Date: 20080630
  Transmission Date: 20090109
  Serious: Yes (Other)
  Sender: FDA-Public Use
  Company Number: 2008017216

PATIENT
  Sex: Male

DRUGS (1)
  1. BENADRYL [Suspect]
     Indication: HYPERSENSITIVITY
     Dosage: 2-4 TABLESPOONFULS / 1/2 BOTTLE ONCE, ORAL
     Route: 048

REACTIONS (2)
  - SKIN DISCOLOURATION [None]
  - SOMNOLENCE [None]
